FAERS Safety Report 8358400-3 (Version None)
Quarter: 2012Q2

REPORT INFORMATION
  Report Type: 
  Country: None (occurrence: None)
  Receive Date: 20120514
  Receipt Date: 20120508
  Transmission Date: 20120825
  Serious: Yes (Other)
  Sender: FDA-Public Use
  Company Number: BR-BAYER-2012-041840

PATIENT
  Age: 12 Year
  Sex: Male
  Weight: 42 kg

DRUGS (5)
  1. DIPYRONE TAB [Concomitant]
     Indication: PAIN IN EXTREMITY
     Dosage: 10 ML, QD
     Route: 048
     Dates: start: 20120229
  2. XARELTO [Suspect]
     Indication: DEEP VEIN THROMBOSIS
     Dosage: 20 MG, QD
     Route: 048
     Dates: start: 20120425, end: 20120504
  3. ACETAMINOPHEN [Concomitant]
     Indication: PAIN IN EXTREMITY
     Dosage: 1 DF, BID
     Route: 048
     Dates: start: 20120505
  4. NAPROXEN SODIUM [Suspect]
  5. WARFARIN SODIUM [Concomitant]
     Indication: THROMBOSIS

REACTIONS (4)
  - DIZZINESS [None]
  - PHLEBITIS [None]
  - TACHYCARDIA [None]
  - THROMBOSIS [None]
